FAERS Safety Report 7798378-4 (Version None)
Quarter: 2011Q4

REPORT INFORMATION
  Report Type: 
  Country: None (occurrence: None)
  Receive Date: 20111005
  Receipt Date: 20110928
  Transmission Date: 20120403
  Serious: Yes (Death, Hospitalization, Other)
  Sender: FDA-Public Use
  Company Number: JP-PFIZER INC-2011171498

PATIENT
  Age: 62 Year
  Sex: Male

DRUGS (1)
  1. AZULFIDINE [Suspect]
     Indication: RHEUMATOID ARTHRITIS
     Dosage: 500 MG, 2X/DAY
     Dates: start: 20110401, end: 20110512

REACTIONS (10)
  - VOMITING [None]
  - ERYTHEMA [None]
  - RENAL FAILURE [None]
  - HAEMATOCHEZIA [None]
  - DRUG RASH WITH EOSINOPHILIA AND SYSTEMIC SYMPTOMS [None]
  - SKIN IRRITATION [None]
  - PYREXIA [None]
  - GENERAL PHYSICAL CONDITION ABNORMAL [None]
  - MULTI-ORGAN FAILURE [None]
  - DIARRHOEA [None]
